FAERS Safety Report 17319405 (Version 3)
Quarter: 2020Q2

REPORT INFORMATION
  Report Type: Report from Study
  Country: US (occurrence: US)
  Receive Date: 20200124
  Receipt Date: 20200629
  Transmission Date: 20200713
  Serious: Yes (Other)
  Sender: FDA-Public Use
  Company Number: US-BAUSCH-BL-2019-064123

PATIENT
  Age: 69 Year
  Sex: Female
  Weight: 75.82 kg

DRUGS (13)
  1. HYDROCHLOROTHIAZIDE. [Concomitant]
     Active Substance: HYDROCHLOROTHIAZIDE
     Indication: PRODUCT USED FOR UNKNOWN INDICATION
  2. POTASSIUM BICARBONATE. [Concomitant]
     Active Substance: POTASSIUM BICARBONATE
     Indication: PRODUCT USED FOR UNKNOWN INDICATION
  3. METFORMIN HCL 100% POWDER [Concomitant]
     Indication: PRODUCT USED FOR UNKNOWN INDICATION
     Route: 048
  4. AMOXICILLIN. [Concomitant]
     Active Substance: AMOXICILLIN
     Indication: PRODUCT USED FOR UNKNOWN INDICATION
  5. SILIQ [Suspect]
     Active Substance: BRODALUMAB
     Indication: PSORIASIS
     Dosage: WEEKS 0, 1, AND 2 FOLLOWED BY 210 MG EVERY 2 WEEKS, 1.5 ML PRE-FILLED SYRINGE 2^S
     Route: 058
     Dates: start: 20191119, end: 201912
  6. OLMESARTAN [Concomitant]
     Active Substance: OLMESARTAN
     Indication: PRODUCT USED FOR UNKNOWN INDICATION
  7. CELECOXIB 100% POWDER [Concomitant]
     Indication: PRODUCT USED FOR UNKNOWN INDICATION
     Route: 048
  8. FISH OIL [Concomitant]
     Active Substance: FISH OIL
     Indication: PRODUCT USED FOR UNKNOWN INDICATION
  9. TRAMADOL HCL 100% POWDER [Concomitant]
     Indication: PRODUCT USED FOR UNKNOWN INDICATION
     Route: 048
  10. SILIQ [Suspect]
     Active Substance: BRODALUMAB
     Dosage: RESTARTED 1.5 ML PRE-FILLED SYRINGE 2^S, WEEKS 0, 1, AND 2 FOLLOWED BY 210 MG EVERY 2 WEEKS
     Route: 058
     Dates: start: 202001, end: 2020
  11. SILIQ [Suspect]
     Active Substance: BRODALUMAB
     Dosage: RESTARTED 1.5 ML PRE-FILLED SYRINGE 2^S, WEEKS 0, 1, AND 2 FOLLOWED BY 210 MG EVERY 2 WEEKS
     Route: 058
     Dates: start: 2020
  12. METHOTREXATE. [Concomitant]
     Active Substance: METHOTREXATE
     Indication: PRODUCT USED FOR UNKNOWN INDICATION
  13. ATORVASTATIN [Concomitant]
     Active Substance: ATORVASTATIN
     Indication: PRODUCT USED FOR UNKNOWN INDICATION

REACTIONS (17)
  - Depressed mood [Recovered/Resolved]
  - Dyspnoea [Unknown]
  - Secretion discharge [Unknown]
  - Intentional product use issue [Unknown]
  - Stress [Unknown]
  - Treatment failure [Unknown]
  - Knee operation [Recovered/Resolved]
  - Chest pain [Unknown]
  - Alopecia [Recovered/Resolved]
  - Psoriasis [Not Recovered/Not Resolved]
  - Pleurisy [Unknown]
  - Arthralgia [Unknown]
  - Chest discomfort [Recovered/Resolved]
  - Disease recurrence [Not Recovered/Not Resolved]
  - Arthritis [Unknown]
  - Pain in extremity [Unknown]
  - Pain [Not Recovered/Not Resolved]

NARRATIVE: CASE EVENT DATE: 2019
